FAERS Safety Report 9298256 (Version 1)
Quarter: 2012Q4

REPORT INFORMATION
  Report Type: Spontaneous
  Country: FR (occurrence: None)
  Receive Date: 20121001
  Receipt Date: 20121001
  Transmission Date: 20130627
  Serious: Yes (Other)
  Sender: FDA-Public Use
  Company Number: JPI-P-006442

PATIENT
  Age: 33 Year
  Sex: Female

DRUGS (10)
  1. XYREM (500 MILLIGRAM/MILLILITERS, SOLUTION) (SODIUM OXYBATE) [Suspect]
     Indication: CATAPLEXY
     Route: 048
     Dates: start: 20081023, end: 20090828
  2. XYREM (500 MILLIGRAM/MILLILITERS, SOLUTION) (SODIUM OXYBATE) [Suspect]
     Indication: CATAPLEXY
     Route: 048
     Dates: start: 20090829, end: 20090910
  3. XYREM (500 MILLIGRAM/MILLILITERS, SOLUTION) (SODIUM OXYBATE) [Suspect]
     Indication: CATAPLEXY
     Route: 048
     Dates: start: 20090829, end: 20090910
  4. XYREM (500 MILLIGRAM/MILLILITERS, SOLUTION) (SODIUM OXYBATE) [Suspect]
     Indication: CATAPLEXY
     Route: 048
     Dates: start: 20090911, end: 20120725
  5. XYREM (500 MILLIGRAM/MILLILITERS, SOLUTION) (SODIUM OXYBATE) [Suspect]
     Indication: CATAPLEXY
     Route: 048
     Dates: start: 20120728
  6. LEVOTHYROXINE SODIUM [Concomitant]
  7. PILOCARPINE [Concomitant]
  8. HYDROXYCHLOROQUINE PHOSPHATE [Concomitant]
  9. GONADORELIN [Concomitant]
  10. PROPRANOLOL [Concomitant]

REACTIONS (8)
  - Formication [None]
  - Dyspnoea [None]
  - Migraine [None]
  - Pain in extremity [None]
  - Hypoaesthesia [None]
  - Vertigo [None]
  - Nausea [None]
  - Abdominal pain [None]
